FAERS Safety Report 7770883-6 (Version None)
Quarter: 2011Q3

REPORT INFORMATION
  Report Type: 
  Country: None (occurrence: None)
  Receive Date: 20110922
  Receipt Date: 20100916
  Transmission Date: 20111222
  Serious: Yes (Hospitalization)
  Sender: FDA-Public Use
  Company Number: US-ASTRAZENECA-2009UW00567

PATIENT
  Age: 15574 Day
  Sex: Female
  Weight: 102.1 kg

DRUGS (27)
  1. REMERON [Concomitant]
     Dates: start: 20001031
  2. DEPAKOTE [Concomitant]
     Indication: BIPOLAR DISORDER
     Dosage: 250 MG 1 AT MORNING AND 2 AT NIGHT
     Dates: start: 20001031
  3. EFFEXOR XR [Concomitant]
     Dates: start: 20031110
  4. LISINOPRIL [Concomitant]
     Dates: start: 20060101
  5. VENLAFAXINE HYDROCHLORIDE [Concomitant]
     Dates: start: 20060819
  6. BENZODIAZEPINE [Concomitant]
  7. DEPAKOTE [Concomitant]
     Indication: ALCOHOL WITHDRAWAL SYNDROME
     Dosage: 250 MG 1 AT MORNING AND 2 AT NIGHT
     Dates: start: 20001031
  8. VICODIN [Concomitant]
     Indication: PAIN
     Dates: start: 20060101
  9. NEURONTIN [Concomitant]
     Dosage: 300 MG 1 QAM AND 2 HS, 100 MG TID
     Dates: start: 20060920
  10. ALLEGRA [Concomitant]
     Dosage: PRN
     Dates: start: 20060920
  11. LITHIUM CARBONATE [Concomitant]
     Dates: start: 20031110
  12. ROZEREM [Concomitant]
     Dosage: AT NIGHT
     Dates: start: 20060920
  13. COLACE [Concomitant]
     Dates: start: 20070526
  14. VALIUM [Concomitant]
     Dates: start: 20070526
  15. SEROQUEL [Suspect]
     Indication: BIPOLAR DISORDER
     Route: 048
     Dates: start: 19980101, end: 20060101
  16. LITHIUM CARBONATE [Concomitant]
     Dates: start: 20060101
  17. PREVACID [Concomitant]
     Dates: start: 20060920
  18. PROTONIX [Concomitant]
     Route: 048
     Dates: start: 20070526
  19. CAMPRAL [Concomitant]
     Dosage: 333 MG 2 BID
     Dates: start: 20060920
  20. FERROUS SULFATE TAB [Concomitant]
     Route: 048
     Dates: start: 20070526
  21. PAXIL [Concomitant]
  22. SEROQUEL [Suspect]
     Route: 048
     Dates: start: 20031110, end: 20070101
  23. ATENOLOL [Concomitant]
     Dates: start: 20060101, end: 20060920
  24. TRILEPTAL [Concomitant]
     Dates: start: 20060920
  25. ATIVAN [Concomitant]
     Dates: start: 20070526
  26. PERCOCET [Concomitant]
     Dosage: ONE TO TWO TABLETS Q 4 HOURS PRN
     Dates: start: 20070526
  27. BENADRYL [Concomitant]
     Dosage: PRN
     Dates: start: 20060920

REACTIONS (9)
  - TYPE 1 DIABETES MELLITUS [None]
  - RESTLESSNESS [None]
  - DIABETES MELLITUS INADEQUATE CONTROL [None]
  - DIABETES MELLITUS [None]
  - AGITATION [None]
  - DIABETIC KETOACIDOSIS [None]
  - DRUG HYPERSENSITIVITY [None]
  - HYPERGLYCAEMIA [None]
  - HYPOGLYCAEMIA [None]
